FAERS Safety Report 12887049 (Version 1)
Quarter: 2016Q4

REPORT INFORMATION
  Report Type: Spontaneous
  Country: US (occurrence: US)
  Receive Date: 20161026
  Receipt Date: 20161026
  Transmission Date: 20170207
  Serious: Yes (Other)
  Sender: FDA-Public Use
  Company Number: US-MYLANLABS-2016M1046074

PATIENT

DRUGS (1)
  1. ZONISAMIDE. [Suspect]
     Active Substance: ZONISAMIDE
     Indication: PRODUCT USED FOR UNKNOWN INDICATION
     Dosage: UNK

REACTIONS (8)
  - Fatigue [Unknown]
  - Hypersomnia [Unknown]
  - Seizure [Unknown]
  - Diplopia [Unknown]
  - Gait disturbance [Unknown]
  - Balance disorder [Unknown]
  - Complex partial seizures [Unknown]
  - Feeling abnormal [Unknown]
